FAERS Safety Report 11749109 (Version 1)
Quarter: 2015Q4

REPORT INFORMATION
  Report Type: Spontaneous
  Country: GB (occurrence: GB)
  Receive Date: 20151118
  Receipt Date: 20151118
  Transmission Date: 20160304
  Serious: Yes (Other)
  Sender: FDA-Public Use
  Company Number: GB-ROCHE-1661833

PATIENT
  Age: 69 Year
  Sex: Female

DRUGS (1)
  1. AVASTIN [Suspect]
     Active Substance: BEVACIZUMAB
     Indication: PRODUCT USED FOR UNKNOWN INDICATION
     Route: 065

REACTIONS (13)
  - Neutropenia [Unknown]
  - Anaemia [Unknown]
  - Alopecia [Unknown]
  - Thrombocytopenia [Unknown]
  - Fatigue [Unknown]
  - Arthralgia [Unknown]
  - Localised infection [Unknown]
  - Fungal infection [Unknown]
  - Bone marrow failure [Unknown]
  - Hypertension [Unknown]
  - Rectal haemorrhage [Unknown]
  - Groin pain [Unknown]
  - Neuropathy peripheral [Unknown]
